FAERS Safety Report 7070864-4 (Version None)
Quarter: 2010Q4

REPORT INFORMATION
  Report Type: 
  Country: None (occurrence: None)
  Receive Date: 20101021
  Receipt Date: 20101009
  Transmission Date: 20110411
  Serious: Yes (Other)
  Sender: FDA-Public Use
  Company Number: 016642

PATIENT
  Sex: Female
  Weight: 49.4421 kg

DRUGS (5)
  1. KEPPRA [Suspect]
     Indication: EPILEPSY
     Dosage: (1500 MG BID ORAL)
     Route: 048
  2. FOLIC ACID [Concomitant]
  3. KLONOPIN [Concomitant]
  4. PRENATAL VITAMINS /01549301/ [Concomitant]
  5. ASPIRIN [Concomitant]

REACTIONS (2)
  - ABORTION SPONTANEOUS [None]
  - DRUG EXPOSURE DURING PREGNANCY [None]
